FAERS Safety Report 6377589-9 (Version None)
Quarter: 2009Q3

REPORT INFORMATION
  Report Type: 
  Country: None (occurrence: None)
  Receive Date: 20090923
  Receipt Date: 20090923
  Transmission Date: 20100115
  Serious: Yes (Life-Threatening)
  Sender: FDA-Public Use
  Company Number: None

PATIENT
  Age: 63 Year
  Sex: Male
  Weight: 88 kg

DRUGS (14)
  1. PROPOFOL [Suspect]
     Indication: SEDATIVE THERAPY
     Dosage: DOSE UNKNOWN IVX1
     Route: 042
     Dates: start: 20090716
  2. ASPIRIN [Concomitant]
  3. CALCIUM ACETATE [Concomitant]
  4. CARVEDILOL [Concomitant]
  5. DICYCLOMINE [Concomitant]
  6. EPOGEN [Concomitant]
  7. ESCITALOPRAM [Concomitant]
  8. LEVOTHYROXINE SODIUM [Concomitant]
  9. LOPERAMIDE [Concomitant]
  10. REGLAN [Concomitant]
  11. M.V.I. [Concomitant]
  12. PARICALCITOL [Concomitant]
  13. PREVACID [Concomitant]
  14. TAMSULOSIN HCL [Concomitant]

REACTIONS (2)
  - HYPOTENSION [None]
  - VENTRICULAR TACHYCARDIA [None]
